FAERS Safety Report 8393816-0 (Version None)
Quarter: 2012Q2

REPORT INFORMATION
  Report Type: 
  Country: None (occurrence: None)
  Receive Date: 20120530
  Receipt Date: 20120427
  Transmission Date: 20120825
  Serious: No
  Sender: FDA-Public Use
  Company Number: US-PFIZER INC-2012124959

PATIENT
  Sex: Female

DRUGS (1)
  1. METRONIDAZOLE [Suspect]
     Dosage: 500 MG, FOR A COUPLE OF DAYS

REACTIONS (3)
  - VOMITING [None]
  - DIZZINESS [None]
  - HEADACHE [None]
